FAERS Safety Report 17302945 (Version 1)
Quarter: 2020Q1

REPORT INFORMATION
  Report Type: Spontaneous
  Country: US (occurrence: US)
  Receive Date: 20200122
  Receipt Date: 20200122
  Transmission Date: 20200409
  Serious: Yes (Other)
  Sender: FDA-Public Use
  Company Number: US-ELI_LILLY_AND_COMPANY-US202001007205

PATIENT
  Age: 73 Year
  Sex: Female

DRUGS (2)
  1. BASAGLAR [Suspect]
     Active Substance: INSULIN GLARGINE
     Indication: PRODUCT USED FOR UNKNOWN INDICATION
     Dosage: 56 U, DAILY
     Route: 065
  2. ADVIL COLD [Concomitant]
     Indication: PRODUCT USED FOR UNKNOWN INDICATION

REACTIONS (8)
  - Thrombosis [Unknown]
  - Cyst [Unknown]
  - Pain in extremity [Unknown]
  - Malaise [Unknown]
  - Fall [Unknown]
  - Arthropathy [Unknown]
  - Oedema peripheral [Unknown]
  - Pain [Unknown]
